FAERS Safety Report 6626506-2 (Version None)
Quarter: 2010Q1

REPORT INFORMATION
  Report Type: 
  Country: None (occurrence: None)
  Receive Date: 20100310
  Receipt Date: 20100224
  Transmission Date: 20100710
  Serious: Yes (Hospitalization, Other)
  Sender: FDA-Public Use
  Company Number: FR-ELI_LILLY_AND_COMPANY-FR201002006828

PATIENT
  Age: 52 Year
  Sex: Male

DRUGS (2)
  1. FORTEO [Suspect]
     Indication: OSTEOPOROSIS
     Dosage: 20 UG, DAILY (1/D)
     Route: 065
     Dates: start: 20090415
  2. KEPPRA [Concomitant]
     Dosage: UNK, UNKNOWN
     Route: 065
     Dates: start: 20100101

REACTIONS (4)
  - CEREBROVASCULAR ACCIDENT [None]
  - EPILEPSY [None]
  - FALL [None]
  - HEMIPLEGIA [None]
